FAERS Safety Report 20517377 (Version 1)
Quarter: 2022Q1

REPORT INFORMATION
  Report Type: Spontaneous
  Country: NL (occurrence: NL)
  Receive Date: 20220225
  Receipt Date: 20220225
  Transmission Date: 20220423
  Serious: Yes (Other)
  Sender: FDA-Public Use
  Company Number: None

PATIENT
  Age: 74 Year
  Sex: Male
  Weight: 77 kg

DRUGS (5)
  1. IRBESARTAN [Suspect]
     Active Substance: IRBESARTAN
     Indication: Hypertension
     Dosage: 300 MG, QD
     Route: 065
     Dates: start: 2021
  2. IRBESARTAN [Suspect]
     Active Substance: IRBESARTAN
     Dosage: 150 MG, QD
     Route: 065
     Dates: start: 2021
  3. LEVOTHYROXINE SODIUM [Concomitant]
     Active Substance: LEVOTHYROXINE SODIUM
     Dosage: TABLET, 100 ?G (MICROGRAM)
  4. PANTOPRAZOLE SODIUM [Concomitant]
     Active Substance: PANTOPRAZOLE SODIUM
     Dosage: 40 MG
  5. RUXOLITINIB [Concomitant]
     Active Substance: RUXOLITINIB
     Dosage: TABLET, 10 MG (MILLIGRAM)

REACTIONS (7)
  - Immobile [Recovered/Resolved]
  - Body temperature decreased [Recovered/Resolved]
  - Musculoskeletal stiffness [Recovered/Resolved]
  - Cyanosis [Recovered/Resolved]
  - Somnolence [Recovered/Resolved]
  - Cyanosis [Recovered/Resolved]
  - Thinking abnormal [Recovered/Resolved]

NARRATIVE: CASE EVENT DATE: 20210909
